FAERS Safety Report 9215147 (Version 1)
Quarter: 2013Q2

REPORT INFORMATION
  Report Type: Report from Study
  Country: US (occurrence: US)
  Receive Date: 20130405
  Receipt Date: 20130405
  Transmission Date: 20140414
  Serious: Yes (Other)
  Sender: FDA-Public Use
  Company Number: US-ABBOTT-13P-163-1070512-00

PATIENT
  Sex: Male
  Weight: 79.45 kg

DRUGS (11)
  1. HUMIRA [Suspect]
     Indication: CROHN^S DISEASE
     Dates: start: 2009, end: 2009
  2. HUMIRA [Suspect]
     Dates: start: 2009, end: 2009
  3. HUMIRA [Suspect]
     Dates: start: 2009, end: 201203
  4. HUMIRA [Suspect]
     Dates: start: 201203
  5. CIPRO [Concomitant]
     Indication: CROHN^S DISEASE
  6. FLAGYL [Concomitant]
     Indication: CROHN^S DISEASE
  7. ZONEGRAN [Concomitant]
     Indication: NERVE INJURY
  8. FLEXERIL [Concomitant]
     Indication: MUSCLE RELAXANT THERAPY
  9. TOPOMAX [Concomitant]
     Indication: MIGRAINE
  10. RIBOFLAVIN [Concomitant]
     Indication: VITAMIN SUPPLEMENTATION
  11. MORPHINE [Concomitant]
     Indication: PAIN

REACTIONS (7)
  - Condition aggravated [Recovered/Resolved]
  - Arthropathy [Recovered/Resolved]
  - Muscle rupture [Recovered/Resolved]
  - Abasia [Recovered/Resolved]
  - Joint instability [Recovered/Resolved]
  - Tendon rupture [Recovered/Resolved]
  - Road traffic accident [Recovered/Resolved]
